FAERS Safety Report 25467051 (Version 2)
Quarter: 2025Q3

REPORT INFORMATION
  Report Type: Spontaneous
  Country: EU (occurrence: EU)
  Receive Date: 20250623
  Receipt Date: 20250716
  Transmission Date: 20251021
  Serious: Yes (Other)
  Sender: SANDOZ
  Company Number: EU-SANDOZ-SDZ2025DE043593

PATIENT
  Age: 72 Year
  Sex: Female

DRUGS (1)
  1. ERELZI [Suspect]
     Active Substance: ETANERCEPT-SZZS
     Indication: Rheumatic disorder
     Route: 065
     Dates: end: 2025

REACTIONS (2)
  - Rheumatic disorder [Unknown]
  - Disease recurrence [Unknown]
